FAERS Safety Report 10814275 (Version 1)
Quarter: 2015Q1

REPORT INFORMATION
  Report Type: Report from Study
  Country: US (occurrence: US)
  Receive Date: 20150218
  Receipt Date: 20150218
  Transmission Date: 20150721
  Serious: No
  Sender: FDA-Public Use
  Company Number: US-ABBVIE-14K-163-1281504-00

PATIENT
  Age: 27 Year
  Sex: Female

DRUGS (1)
  1. HUMIRA [Suspect]
     Active Substance: ADALIMUMAB
     Indication: CROHN^S DISEASE
     Route: 058
     Dates: start: 20140118

REACTIONS (5)
  - Injection site reaction [Unknown]
  - Contusion [Unknown]
  - Psoriasis [Unknown]
  - Rash macular [Unknown]
  - Rash generalised [Unknown]

NARRATIVE: CASE EVENT DATE: 20140831
